FAERS Safety Report 4979736-X (Version None)
Quarter: 2006Q2

REPORT INFORMATION
  Report Type: 
  Country: None (occurrence: None)
  Receive Date: 20060421
  Receipt Date: 20060410
  Transmission Date: 20061013
  Serious: Yes (Hospitalization, Disabling)
  Sender: FDA-Public Use
  Company Number: US-BRISTOL-MYERS SQUIBB COMPANY-13341920

PATIENT
  Age: 84 Year
  Sex: Male
  Weight: 86 kg

DRUGS (7)
  1. ABILIFY [Suspect]
     Dates: start: 20051101
  2. TRICOR [Concomitant]
  3. NAMENDA [Concomitant]
  4. ARICEPT [Concomitant]
  5. ENALAPRIL MALEATE [Concomitant]
  6. TORSEMIDE [Concomitant]
  7. SOTALOL HCL [Concomitant]

REACTIONS (7)
  - ANOREXIA [None]
  - GASTROINTESTINAL HAEMORRHAGE [None]
  - HYPOTENSION [None]
  - RENAL FAILURE ACUTE [None]
  - TREMOR [None]
  - ULCER [None]
  - WEIGHT DECREASED [None]
